FAERS Safety Report 7412592-9 (Version None)
Quarter: 2011Q2

REPORT INFORMATION
  Report Type: 
  Country: None (occurrence: None)
  Receive Date: 20110413
  Receipt Date: 20110408
  Transmission Date: 20111010
  Serious: Yes (Death)
  Sender: FDA-Public Use
  Company Number: BE-ABBOTT-11P-013-0705854-00

PATIENT
  Sex: Male
  Weight: 74 kg

DRUGS (6)
  1. LUCRIN DEPOT 11.25 MG [Suspect]
     Indication: PROSTATE CANCER
     Dates: start: 20081003, end: 20090930
  2. ASPIRIN [Concomitant]
     Indication: ARTERIOSCLEROSIS
     Route: 048
  3. ESTRACYT [Concomitant]
     Indication: PRODUCT USED FOR UNKNOWN INDICATION
     Dates: start: 20090930
  4. LEXOTAN [Concomitant]
     Indication: PRODUCT USED FOR UNKNOWN INDICATION
     Route: 048
  5. ASPIRIN [Concomitant]
     Indication: PROPHYLAXIS
  6. LANOXIN [Concomitant]
     Indication: PRODUCT USED FOR UNKNOWN INDICATION

REACTIONS (3)
  - PROSTATE CANCER METASTATIC [None]
  - CACHEXIA [None]
  - DISEASE PROGRESSION [None]
